FAERS Safety Report 4292335-0 (Version None)
Quarter: 2004Q1

REPORT INFORMATION
  Report Type: 
  Country: None (occurrence: None)
  Receive Date: 20040126
  Receipt Date: 20031028
  Transmission Date: 20041129
  Serious: No
  Sender: FDA-Public Use
  Company Number: USA031050947

PATIENT
  Age: 73 Year
  Sex: Female

DRUGS (1)
  1. FORTEO [Suspect]
     Dosage: 20 UG DAY

REACTIONS (4)
  - BLOOD IMMUNOGLOBULIN E [None]
  - HYPERSENSITIVITY [None]
  - PRURITUS [None]
  - RASH ERYTHEMATOUS [None]
